FAERS Safety Report 17992126 (Version 2)
Quarter: 2020Q3

REPORT INFORMATION
  Report Type: Spontaneous
  Country: GB (occurrence: GB)
  Receive Date: 20200708
  Receipt Date: 20200727
  Transmission Date: 20201103
  Serious: Yes (Other)
  Sender: FDA-Public Use
  Company Number: GB-AUROBINDO-AUR-APL-2020-033915

PATIENT
  Sex: Male

DRUGS (1)
  1. ARIPIPRAZOLE MILPHARM TABLETS 15 MG [Suspect]
     Active Substance: ARIPIPRAZOLE
     Indication: SCHIZOPHRENIA
     Dosage: 30 MILLIGRAM, DAILY
     Route: 048
     Dates: start: 20200622, end: 20200624

REACTIONS (5)
  - Product substitution issue [Unknown]
  - Drug ineffective [Unknown]
  - Schizophrenia [Recovered/Resolved]
  - Delusion [Recovered/Resolved]
  - Depressed mood [Recovered/Resolved]

NARRATIVE: CASE EVENT DATE: 20200622
